FAERS Safety Report 11643668 (Version 1)
Quarter: 2015Q4

REPORT INFORMATION
  Report Type: Spontaneous
  Country: US (occurrence: None)
  Receive Date: 20151019
  Receipt Date: 20151019
  Transmission Date: 20160304
  Serious: Yes (Life-Threatening, Disabling)
  Sender: FDA-Public Use
  Company Number: None

PATIENT
  Age: 55 Year
  Sex: Female
  Weight: 90.72 kg

DRUGS (6)
  1. MELATONIN [Concomitant]
     Active Substance: MELATONIN
  2. FLUOXETINE [Concomitant]
     Active Substance: FLUOXETINE HYDROCHLORIDE
  3. CALCIUM 600 + D [Concomitant]
     Active Substance: CALCIUM\VITAMIN D
  4. FLUOXETINE [Suspect]
     Active Substance: FLUOXETINE HYDROCHLORIDE
     Indication: DEPRESSION
     Route: 048
  5. FLONASE [Concomitant]
     Active Substance: FLUTICASONE PROPIONATE
  6. SYNTHROID [Concomitant]
     Active Substance: LEVOTHYROXINE SODIUM

REACTIONS (5)
  - Suicidal ideation [None]
  - Loss of employment [None]
  - Depression [None]
  - Stress [None]
  - Product substitution issue [None]

NARRATIVE: CASE EVENT DATE: 20140414
